FAERS Safety Report 6711824-X (Version None)
Quarter: 2010Q2

REPORT INFORMATION
  Report Type: 
  Country: None (occurrence: None)
  Receive Date: 20100505
  Receipt Date: 20100421
  Transmission Date: 20101027
  Serious: Yes (Hospitalization)
  Sender: FDA-Public Use
  Company Number: US-ELI_LILLY_AND_COMPANY-US201003007642

PATIENT
  Sex: Female

DRUGS (15)
  1. FORTEO [Suspect]
     Indication: OSTEOPOROSIS
     Dosage: 20 UG, DAILY (1/D)
     Dates: start: 20100224, end: 20100101
  2. DEXLANSOPRAZOLE [Concomitant]
     Indication: GASTROOESOPHAGEAL REFLUX DISEASE
     Dosage: 60 MG, UNK
  3. MUCINEX [Concomitant]
     Dosage: 600 MG, 2/D
  4. TRAMADOL [Concomitant]
     Dosage: 50 MG, AS NEEDED
  5. ALBUTEROL [Concomitant]
     Dosage: UNK, 4/D
     Route: 055
  6. BROVANA [Concomitant]
     Indication: LUNG DISORDER
  7. PULMICORT [Concomitant]
     Dosage: UNK, 2/D
  8. SPIRIVA [Concomitant]
     Dosage: 18 UG, DAILY (1/D)
  9. POTASSIUM [Concomitant]
     Dosage: 20 MEQ, DAILY (1/D)
  10. TYLENOL (CAPLET) [Concomitant]
  11. XANAX [Concomitant]
  12. PROMETHAZINE [Concomitant]
     Indication: NAUSEA
  13. DOXYCYCLINE [Concomitant]
     Dosage: UNK, 2/D
  14. FUROSEMIDE                         /00032601/ [Concomitant]
     Dosage: 20 MG, UNK
  15. LISINOPRIL [Concomitant]
     Dosage: 20 MG, UNK

REACTIONS (6)
  - ABDOMINAL PAIN [None]
  - BRONCHITIS [None]
  - MALAISE [None]
  - NAUSEA [None]
  - PAIN [None]
  - PYREXIA [None]
